FAERS Safety Report 9478325 (Version 1)
Quarter: 2013Q3

REPORT INFORMATION
  Report Type: Report from Study
  Country: US (occurrence: US)
  Receive Date: 20130827
  Receipt Date: 20130827
  Transmission Date: 20140515
  Serious: Yes (Death, Life-Threatening, Hospitalization, Other)
  Sender: FDA-Public Use
  Company Number: US-009507513-1308USA010460

PATIENT
  Age: 11 Year
  Sex: Male
  Weight: 32.18 kg

DRUGS (36)
  1. TEMOZOLOMIDE [Suspect]
     Indication: NEOPLASM
     Dosage: 100 MG/M2, DAYS 1-5, CYCLE=21 DAYS: (MAX=12 MONTHS)
     Route: 048
     Dates: start: 20110823, end: 20110920
  2. TEMSIROLIMUS [Suspect]
     Indication: NEOPLASM
     Dosage: 35 MG/M2/DOSE IV OVER 30 MINUTES ON DAYS 1 AND 8 CYCLE=21 DAYS: (MAX=12 MONTHS)
     Route: 042
     Dates: start: 20110823, end: 20110916
  3. IRINOTECAN HYDROCHLORIDE [Suspect]
     Indication: NEOPLASM
     Dosage: 50 MG/M2,DAYS 1-5, CYCLE=21 DAYS: (MAX=12 MONTHS)
     Route: 042
     Dates: start: 20110823, end: 20110920
  4. BACTRIM [Concomitant]
     Indication: ANTIFUNGAL PROPHYLAXIS
     Dosage: 1 SINGLE STRENGTH TAB BY MOUTH TWICE A DAY ON FRIDAY, SATURDAY AND SUNDAY FOR PCP PROPHYLAXIS
     Route: 048
  5. OXYCONTIN [Concomitant]
     Indication: PAIN
     Dosage: 10 MG, Q12H BY MOUTH
     Route: 048
  6. OXYCODONE [Concomitant]
     Indication: PAIN
     Dosage: 7 MG, Q4H BY MOUTH AS NEEDED
     Route: 048
  7. MORPHINE [Concomitant]
     Indication: PAIN
     Dosage: MORPHINE 2MG IV EVERY 3 HOURS AS NEEDED
     Route: 042
  8. RANITIDINE [Concomitant]
     Dosage: 150 MG, Q12H
     Route: 042
  9. NIFEDIPINE [Concomitant]
     Indication: BLOOD PRESSURE INCREASED
     Dosage: 10 MG, EVERY 4 HOURS AS NEEDED
     Route: 048
  10. MIRALAX [Concomitant]
     Indication: CONSTIPATION
     Dosage: 17 G, QD
     Route: 048
  11. COLACE [Concomitant]
     Indication: CONSTIPATION
     Dosage: 50 MG, Q12H
     Route: 048
  12. FLAGYL [Concomitant]
     Indication: PROPHYLAXIS
     Dosage: 250 MG, Q6H
     Route: 042
  13. NEXIUM [Concomitant]
     Dosage: 20 MG, Q12H
     Route: 042
  14. NEURONTIN [Concomitant]
     Indication: NEUROPATHY PERIPHERAL
     Dosage: 200 MG, Q12H
     Route: 048
  15. LACTULOSE [Concomitant]
     Dosage: 20 MG, BID
     Route: 048
  16. PEPCID [Concomitant]
     Dosage: 30 MG, QD
     Route: 048
  17. MAGNESIUM CITRATE [Concomitant]
     Indication: CONSTIPATION
     Dosage: 150 MG BY MOUTH EVERY 4 HOURS X 3
     Route: 048
  18. PREVACID [Concomitant]
     Dosage: 30 MG, Q12H
     Route: 048
  19. FLEET ENEMA [Concomitant]
     Indication: CONSTIPATION
     Dosage: X ONE
  20. BENADRYL [Concomitant]
     Indication: PREMEDICATION
     Dosage: 20 MG, Q6H PRN
     Route: 048
  21. TYLENOL [Concomitant]
     Indication: PREMEDICATION
     Dosage: 475 MG, PRN
  22. CARAFATE [Concomitant]
     Indication: ABDOMINAL PAIN
     Dosage: 1 G, Q8H
     Route: 048
  23. CARAFATE [Concomitant]
     Indication: FLATULENCE
  24. FERROUS SULFATE [Concomitant]
     Dosage: 100 MG, QD
     Route: 048
  25. ZOFRAN [Concomitant]
     Indication: NAUSEA
     Dosage: 4 MG, Q8H
     Route: 042
  26. VISTARIL [Concomitant]
     Indication: NAUSEA
     Dosage: 25 MG, EVERY 6 HOURS AS NEEDED
  27. ZOSYN [Concomitant]
     Indication: PYREXIA
     Dosage: UNK, Q6H
     Route: 042
  28. ACTIGALL [Concomitant]
     Dosage: 300 MG, Q12H
     Route: 048
  29. LASIX (FUROSEMIDE) [Concomitant]
     Indication: WEIGHT INCREASED
     Dosage: 40MG IV EVERY 12 HOURS
     Route: 042
  30. LASIX (FUROSEMIDE) [Concomitant]
     Indication: FLUID RETENTION
  31. ALBUMIN HUMAN [Concomitant]
     Indication: WEIGHT INCREASED
     Dosage: 25 G, UNK
     Route: 042
  32. ALBUMIN HUMAN [Concomitant]
     Indication: FLUID RETENTION
  33. LOVENOX [Concomitant]
     Indication: THROMBOSIS PROPHYLAXIS
     Dosage: 30MG SQ EVERY 12 HOURS
     Route: 058
  34. ATIVAN [Concomitant]
     Indication: ANXIETY
     Dosage: 0.5MG IV EVERY 6 HOURS AS NEEDED
     Route: 042
  35. ALDACTONE TABLETS [Concomitant]
     Indication: WEIGHT INCREASED
     Dosage: 50 MG, QD
     Route: 048
  36. ALDACTONE TABLETS [Concomitant]
     Indication: FLUID RETENTION

REACTIONS (10)
  - Hepatocellular carcinoma [Fatal]
  - Disease progression [Fatal]
  - Blood bilirubin increased [Not Recovered/Not Resolved]
  - Aspartate aminotransferase increased [Not Recovered/Not Resolved]
  - Ascites [Not Recovered/Not Resolved]
  - Alanine aminotransferase increased [Recovered/Resolved]
  - Blood alkaline phosphatase increased [Not Recovered/Not Resolved]
  - Abdominal pain [Not Recovered/Not Resolved]
  - Testicular disorder [Not Recovered/Not Resolved]
  - Testicular pain [Not Recovered/Not Resolved]
